FAERS Safety Report 9639917 (Version 1)
Quarter: 2013Q4

REPORT INFORMATION
  Report Type: Spontaneous
  Country: US (occurrence: None)
  Receive Date: 20131021
  Receipt Date: 20131021
  Transmission Date: 20140711
  Serious: Yes (Other)
  Sender: FDA-Public Use
  Company Number: None

PATIENT
  Age: 55 None
  Sex: Female
  Weight: 58.06 kg

DRUGS (9)
  1. BONIVA [Suspect]
     Indication: OSTEOPENIA
     Dosage: IV EVERY 3 MONTHS
     Route: 048
     Dates: start: 1998, end: 20120420
  2. FOSAMAX [Suspect]
     Indication: OSTEOPENIA
     Route: 048
     Dates: start: 1998, end: 201204
  3. DIOVAN [Concomitant]
  4. EFFEXOR [Concomitant]
  5. TEMAZEPAM [Concomitant]
  6. FORTEO [Concomitant]
  7. PROBIOTICS [Concomitant]
  8. CALCIUM [Concomitant]
  9. VITAMIN D [Concomitant]

REACTIONS (7)
  - Pain in extremity [None]
  - Local swelling [None]
  - Foot fracture [None]
  - Atypical fracture [None]
  - Fracture nonunion [None]
  - Bone disorder [None]
  - Incorrect drug administration duration [None]
